FAERS Safety Report 9350673 (Version 2)
Quarter: 2013Q2

REPORT INFORMATION
  Report Type: Spontaneous
  Country: IT (occurrence: IT)
  Receive Date: 20130617
  Receipt Date: 20130620
  Transmission Date: 20140414
  Serious: Yes (Hospitalization)
  Sender: FDA-Public Use
  Company Number: PHHY2013IT060591

PATIENT
  Sex: Female

DRUGS (5)
  1. GILENYA [Suspect]
     Dosage: 0.5 MG, UNK
     Route: 048
     Dates: start: 20120619, end: 20130408
  2. TAREG [Concomitant]
     Dosage: 40 MG, UNK
  3. LASIX [Concomitant]
     Dosage: 25 MG, BID
  4. LYRICA [Concomitant]
     Dosage: 75 MG, BID
  5. PAROXETINE [Concomitant]
     Dosage: 20 MG, UNK

REACTIONS (3)
  - Mitral valve disease [Recovering/Resolving]
  - Pericarditis [Unknown]
  - Endocarditis bacterial [Unknown]
